FAERS Safety Report 9324046 (Version 2)
Quarter: 2013Q3

REPORT INFORMATION
  Report Type: Report from Study
  Country: US (occurrence: US)
  Receive Date: 20130603
  Receipt Date: 20130711
  Transmission Date: 20140515
  Serious: Yes (Other)
  Sender: FDA-Public Use
  Company Number: US-SANOFI-AVENTIS-2013SA055110

PATIENT
  Age: 58 Year
  Sex: Female
  Weight: 104.32 kg

DRUGS (16)
  1. AUBAGIO [Suspect]
     Indication: MULTIPLE SCLEROSIS
     Route: 048
     Dates: start: 20130323
  2. AMLODIPINE BESILATE [Concomitant]
     Indication: HYPERTENSION
     Route: 065
     Dates: start: 20130305
  3. NEBIVOLOL [Concomitant]
     Indication: HYPERTENSION
     Route: 065
     Dates: start: 20130305
  4. FUROSEMIDE [Concomitant]
     Indication: OEDEMA
     Dosage: IF NEEDED BE TAKE ONE MORE
     Route: 065
     Dates: start: 20120917
  5. GLIMEPIRIDE [Concomitant]
     Indication: DIABETES MELLITUS
     Dosage: 4 MG IN AM AND 4 MG BEFORE DINNER?AMARYL
     Route: 065
     Dates: start: 20091120
  6. METFORMIN [Concomitant]
     Indication: POLYCYSTIC OVARIES
     Route: 065
     Dates: start: 1999
  7. METFORMIN [Concomitant]
     Indication: DIABETES MELLITUS
     Route: 065
     Dates: start: 1999
  8. NIASPAN [Concomitant]
     Indication: BLOOD TRIGLYCERIDES
     Route: 065
     Dates: start: 20120702
  9. TRICOR [Concomitant]
     Indication: HIGH DENSITY LIPOPROTEIN
     Route: 065
     Dates: start: 200410
  10. VICTOZA [Concomitant]
     Indication: DIABETES MELLITUS
     Dosage: SHOT 1 X A DAY?.6 FOR WEEK, 1.2 FOR WEEK, 1.8 FOR WEEK
     Route: 065
     Dates: start: 201111
  11. ASPIRIN [Concomitant]
     Route: 065
  12. CALTRATE [Concomitant]
     Route: 065
  13. FISH OIL [Concomitant]
     Indication: CARDIAC DISORDER
     Route: 065
     Dates: start: 20120510
  14. ARGININE/DEXFOSFOSERINE/FOLIC ACID/TRYPTOPHAN, L-/CYANOCOBALAMIN/THREONINE [Concomitant]
     Route: 065
  15. VITAMIN D3 [Concomitant]
     Route: 065
  16. CENTRUM SILVER [Concomitant]
     Route: 065

REACTIONS (6)
  - Loss of consciousness [Recovered/Resolved]
  - Dizziness [Recovered/Resolved]
  - Fall [Recovered/Resolved]
  - Periorbital contusion [Recovered/Resolved]
  - Contusion [Recovered/Resolved]
  - Mouth haemorrhage [Recovered/Resolved]
